FAERS Safety Report 8178594-2 (Version None)
Quarter: 2012Q1

REPORT INFORMATION
  Report Type: 
  Country: None (occurrence: None)
  Receive Date: 20120301
  Receipt Date: 20120221
  Transmission Date: 20120608
  Serious: Yes (Hospitalization, Other)
  Sender: FDA-Public Use
  Company Number: US-ELI_LILLY_AND_COMPANY-US201112005166

PATIENT
  Sex: Female

DRUGS (13)
  1. HYDROCODONE BITARTRATE [Concomitant]
  2. PREDNISONE TAB [Concomitant]
  3. ADVAIR DISKUS 100/50 [Concomitant]
  4. KLONOPIN [Concomitant]
  5. COUMADIN [Concomitant]
  6. WARFARIN SODIUM [Concomitant]
  7. FORTEO [Suspect]
     Dosage: 20 UG, QD
     Route: 058
  8. HUMIRA [Concomitant]
     Dosage: UNK, OTHER
  9. FORTEO [Suspect]
     Dosage: 20 UG, QD
     Route: 058
     Dates: end: 20120115
  10. NEXIUM [Concomitant]
  11. FORTEO [Suspect]
     Indication: OSTEOPOROSIS
     Dosage: 20 UG, QD
     Route: 058
     Dates: start: 20111213
  12. METOPROLOL SUCCINATE [Concomitant]
     Indication: BLOOD PRESSURE
  13. CLONIDINE [Concomitant]
     Indication: BLOOD PRESSURE

REACTIONS (9)
  - FALL [None]
  - DRUG DOSE OMISSION [None]
  - SYNCOPE [None]
  - NASOPHARYNGITIS [None]
  - TREMOR [None]
  - ASTHENIA [None]
  - DIARRHOEA [None]
  - GASTROENTERITIS VIRAL [None]
  - ACCIDENTAL OVERDOSE [None]
